FAERS Safety Report 6557924-9 (Version None)
Quarter: 2010Q1

REPORT INFORMATION
  Report Type: 
  Country: None (occurrence: None)
  Receive Date: 20100129
  Receipt Date: 20100125
  Transmission Date: 20100710
  Serious: Yes (Death)
  Sender: FDA-Public Use
  Company Number: CH-ASTRAZENECA-2010SE03858

PATIENT
  Age: 38 Year
  Sex: Male

DRUGS (8)
  1. SEROQUEL [Suspect]
     Dosage: 25-50 MG DAILY
     Route: 048
     Dates: start: 20091105, end: 20091116
  2. ABILIFY [Suspect]
     Route: 048
     Dates: end: 20091117
  3. METHADONE [Interacting]
     Route: 048
     Dates: end: 20091015
  4. METHADONE [Interacting]
     Route: 048
     Dates: start: 20091016, end: 20091117
  5. VALIUM [Interacting]
     Dosage: 40-50 MG
     Route: 048
     Dates: end: 20091112
  6. VALIUM [Interacting]
     Route: 048
     Dates: start: 20091113, end: 20091115
  7. XANAX [Suspect]
     Route: 048
     Dates: start: 20091113, end: 20091115
  8. XANAX [Suspect]
     Route: 048
     Dates: start: 20091116, end: 20091117

REACTIONS (1)
  - COMPLETED SUICIDE [None]
